FAERS Safety Report 23264562 (Version 6)
Quarter: 2024Q1

REPORT INFORMATION
  Report Type: Spontaneous
  Country: US (occurrence: US)
  Receive Date: 20231205
  Receipt Date: 20240213
  Transmission Date: 20240410
  Serious: Yes (Other)
  Sender: FDA-Public Use
  Company Number: US-BRISTOL-MYERS SQUIBB COMPANY-2023-172026

PATIENT
  Age: 81 Year
  Sex: Male

DRUGS (4)
  1. LENALIDOMIDE [Suspect]
     Active Substance: LENALIDOMIDE
     Indication: Plasma cell myeloma
     Dosage: TAKE 1 WHOLE CAPSULE BY MOUTH WITH WATER AT THE SAME TIME EVERY DAY ON DAYS 1-21 OF EACH 28 DAY CYCL
     Route: 048
     Dates: start: 20231101, end: 20231127
  2. LENALIDOMIDE [Suspect]
     Active Substance: LENALIDOMIDE
     Dosage: TAKE 1 WHOLE  CAPSULE BY MOUTH WITH WATER AT THE SAME TIME EVERY DAY ON MONDAY-FRIDAY FOR 3 WEEKS ON
     Route: 048
  3. LENALIDOMIDE [Suspect]
     Active Substance: LENALIDOMIDE
     Dosage: TAKE 1 WHOLE  CAPSULE BY MOUTH WITH WATER AT THE SAME TIME EVERY DAY ON MONDAY-FRIDAY FOR 3 WEEKS ON
     Route: 048
     Dates: start: 20240123
  4. LENALIDOMIDE [Suspect]
     Active Substance: LENALIDOMIDE
     Dosage: 3 DAYS/WEEK

REACTIONS (3)
  - Red blood cell count decreased [Recovering/Resolving]
  - Full blood count decreased [Not Recovered/Not Resolved]
  - Off label use [Unknown]
